FAERS Safety Report 7775406-3 (Version None)
Quarter: 2011Q3

REPORT INFORMATION
  Report Type: 
  Country: None (occurrence: None)
  Receive Date: 20110923
  Receipt Date: 20110908
  Transmission Date: 20111222
  Serious: Yes (Other)
  Sender: FDA-Public Use
  Company Number: PHHY2011BR80543

PATIENT
  Sex: Male

DRUGS (6)
  1. DIOVAN [Suspect]
     Dosage: 160 MG, UNK
  2. SIMVASTATIN [Suspect]
     Dosage: UNK UKN, UNK
  3. INSULIN [Suspect]
     Dosage: UNK UKN, UNK
  4. ATENOLOL [Suspect]
     Dosage: UNK UKN, UNK
  5. ACARBOSE [Suspect]
     Dosage: UNK UKN, UNK
  6. AMLODIPINE BESYLATE [Suspect]
     Dosage: UNK UKN, UNK

REACTIONS (6)
  - MEMORY IMPAIRMENT [None]
  - CEREBROVASCULAR ACCIDENT [None]
  - RENAL IMPAIRMENT [None]
  - DIABETES MELLITUS [None]
  - CEREBRAL THROMBOSIS [None]
  - SPEECH DISORDER [None]
